FAERS Safety Report 4842417-7 (Version None)
Quarter: 2005Q4

REPORT INFORMATION
  Report Type: 
  Country: None (occurrence: None)
  Receive Date: 20051201
  Receipt Date: 20051123
  Transmission Date: 20060501
  Serious: Yes (Hospitalization)
  Sender: FDA-Public Use
  Company Number: US-KINGPHARMUSA00001-K200501510

PATIENT
  Sex: Female

DRUGS (4)
  1. ALTACE [Suspect]
     Dosage: 10 MG, QD
     Route: 048
  2. MIXED INSULIN [Concomitant]
     Indication: DIABETES MELLITUS
  3. METFORMIN [Concomitant]
     Indication: DIABETES MELLITUS
  4. ATENOLOL [Concomitant]

REACTIONS (3)
  - ANGINA PECTORIS [None]
  - HEART RATE DECREASED [None]
  - HYPOGLYCAEMIA [None]
